FAERS Safety Report 20803221 (Version 1)
Quarter: 2022Q2

REPORT INFORMATION
  Report Type: Report from Study
  Country: US (occurrence: US)
  Receive Date: 20220509
  Receipt Date: 20220509
  Transmission Date: 20220721
  Serious: Yes (Hospitalization, Other)
  Sender: FDA-Public Use
  Company Number: US-GILEAD-2022-0579868

PATIENT
  Age: 31 Year
  Sex: Female

DRUGS (14)
  1. AZTREONAM LYSINE [Suspect]
     Active Substance: AZTREONAM LYSINE
     Indication: Cystic fibrosis lung
     Dosage: 75 MG, TID FOR 28 DAYS ON/28 DAYS OFF
     Route: 055
  2. SPIRIVA [TIOTROPIUM BROMIDE] [Concomitant]
  3. PULMOZYME [Concomitant]
     Active Substance: DORNASE ALFA
  4. MIRENA [Concomitant]
     Active Substance: LEVONORGESTREL
  5. TRIKAFTA [Concomitant]
     Active Substance: ELEXACAFTOR\IVACAFTOR\TEZACAFTOR
  6. ZENPEP [Concomitant]
     Active Substance: PANCRELIPASE AMYLASE\PANCRELIPASE LIPASE\PANCRELIPASE PROTEASE
  7. DULERA [Concomitant]
     Active Substance: FORMOTEROL FUMARATE DIHYDRATE\MOMETASONE FUROATE
  8. SERTRALINE [Concomitant]
     Active Substance: SERTRALINE HYDROCHLORIDE
  9. SODIUM CHLORIDE [Concomitant]
     Active Substance: SODIUM CHLORIDE
  10. FLUTICASONE PROPIONATE [Concomitant]
     Active Substance: FLUTICASONE PROPIONATE
  11. VITAMIN D3 [Concomitant]
     Active Substance: CHOLECALCIFEROL
  12. CETIRIZINE [Concomitant]
     Active Substance: CETIRIZINE HYDROCHLORIDE
  13. PROAIR HFA [Concomitant]
     Active Substance: ALBUTEROL SULFATE
  14. PROPRANOLOL [Concomitant]
     Active Substance: PROPRANOLOL HYDROCHLORIDE

REACTIONS (1)
  - Bronchial artery embolisation [Unknown]

NARRATIVE: CASE EVENT DATE: 20220421
